FAERS Safety Report 5412915-6 (Version None)
Quarter: 2007Q3

REPORT INFORMATION
  Report Type: 
  Country: None (occurrence: None)
  Receive Date: 20070713
  Receipt Date: 20070323
  Transmission Date: 20080115
  Serious: No
  Sender: FDA-Public Use
  Company Number: 2007SP001072

PATIENT
  Age: 74 Year
  Sex: Female
  Weight: 53.978 kg

DRUGS (10)
  1. LUNESTA [Suspect]
     Indication: INITIAL INSOMNIA
     Dosage: 2 MG;ORAL
     Route: 048
     Dates: start: 20070302, end: 20070315
  2. SEPTRA [Concomitant]
  3. METOPROLOL SUCCINATE [Concomitant]
  4. PAROXETINE [Concomitant]
  5. NORTRIPTYLINE HCL [Concomitant]
  6. CRESTOR [Concomitant]
  7. DIGITEK [Concomitant]
  8. TRAMADOL HCL [Concomitant]
  9. QUININE [Concomitant]
  10. TYLENOL [Concomitant]

REACTIONS (2)
  - CONFUSIONAL STATE [None]
  - INSOMNIA [None]
